FAERS Safety Report 9321482 (Version 2)
Quarter: 2013Q3

REPORT INFORMATION
  Report Type: Spontaneous
  Country: US (occurrence: None)
  Receive Date: 20130528
  Receipt Date: 20130703
  Transmission Date: 20140515
  Serious: Yes (Other)
  Sender: FDA-Public Use
  Company Number: 2013AP005307

PATIENT
  Sex: Female

DRUGS (2)
  1. OLANZAPINE [Suspect]
     Dates: start: 201211
  2. ZYPREXA [Concomitant]

REACTIONS (9)
  - Drug ineffective [None]
  - Condition aggravated [None]
  - Dizziness [None]
  - Emotional disorder [None]
  - Eye movement disorder [None]
  - Musculoskeletal stiffness [None]
  - Amnesia [None]
  - Convulsion [None]
  - Product substitution issue [None]
